FAERS Safety Report 4536616-1 (Version None)
Quarter: 2004Q4

REPORT INFORMATION
  Report Type: 
  Country: None (occurrence: None)
  Receive Date: 20041223
  Receipt Date: 20041215
  Transmission Date: 20050328
  Serious: Yes (Other)
  Sender: FDA-Public Use
  Company Number: 200414780FR

PATIENT
  Sex: Female

DRUGS (2)
  1. KETEK [Suspect]
     Indication: SINUSITIS
  2. ACETYLCYSTEINE [Concomitant]

REACTIONS (2)
  - AMAUROSIS [None]
  - VISION BLURRED [None]
